FAERS Safety Report 8343367-4 (Version None)
Quarter: 2012Q2

REPORT INFORMATION
  Report Type: 
  Country: None (occurrence: None)
  Receive Date: 20120508
  Receipt Date: 20120427
  Transmission Date: 20120825
  Serious: Yes (Other)
  Sender: FDA-Public Use
  Company Number: CA-JNJFOC-20120406347

PATIENT
  Sex: Female
  Weight: 52 kg

DRUGS (3)
  1. CELEBREX [Concomitant]
     Route: 065
  2. REMICADE [Suspect]
     Indication: PSORIATIC ARTHROPATHY
     Route: 042
     Dates: start: 20120215
  3. METHOTREXATE [Concomitant]
     Route: 058

REACTIONS (5)
  - CHOLELITHIASIS [None]
  - DYSPEPSIA [None]
  - HYPOAESTHESIA [None]
  - ARTHRITIS [None]
  - HOT FLUSH [None]
